FAERS Safety Report 12567984 (Version 1)
Quarter: 2016Q3

REPORT INFORMATION
  Report Type: Spontaneous
  Country: FR (occurrence: FR)
  Receive Date: 20160718
  Receipt Date: 20160718
  Transmission Date: 20161109
  Serious: Yes (Hospitalization)
  Sender: FDA-Public Use
  Company Number: FR-SA-2016SA127697

PATIENT
  Age: 5 Year
  Sex: Male

DRUGS (10)
  1. LOVENOX [Suspect]
     Active Substance: ENOXAPARIN SODIUM
     Indication: INTRACRANIAL VENOUS SINUS THROMBOSIS
     Route: 058
     Dates: start: 20160210, end: 20160210
  2. VINCRISTINE [Concomitant]
     Active Substance: VINCRISTINE
     Indication: ACUTE LYMPHOCYTIC LEUKAEMIA
     Route: 065
     Dates: start: 20160105
  3. KIDROLASE [Concomitant]
     Active Substance: ASPARAGINASE
     Indication: ACUTE LYMPHOCYTIC LEUKAEMIA
     Route: 065
     Dates: start: 20160105
  4. LOVENOX [Suspect]
     Active Substance: ENOXAPARIN SODIUM
     Indication: INTRACRANIAL VENOUS SINUS THROMBOSIS
     Route: 058
     Dates: start: 20160222
  5. METHOTREXATE. [Concomitant]
     Active Substance: METHOTREXATE
     Indication: ACUTE LYMPHOCYTIC LEUKAEMIA
     Route: 065
     Dates: start: 20160105
  6. DAUNORUBICINE [Concomitant]
     Active Substance: DAUNORUBICIN
     Indication: ACUTE LYMPHOCYTIC LEUKAEMIA
     Route: 065
     Dates: start: 20160105
  7. LOVENOX [Suspect]
     Active Substance: ENOXAPARIN SODIUM
     Indication: INTRACRANIAL VENOUS SINUS THROMBOSIS
     Route: 058
     Dates: start: 20160125, end: 20160203
  8. LOVENOX [Suspect]
     Active Substance: ENOXAPARIN SODIUM
     Indication: INTRACRANIAL VENOUS SINUS THROMBOSIS
     Route: 058
     Dates: start: 20160211, end: 20160212
  9. LOVENOX [Suspect]
     Active Substance: ENOXAPARIN SODIUM
     Indication: INTRACRANIAL VENOUS SINUS THROMBOSIS
     Route: 058
     Dates: start: 20160122, end: 20160124
  10. LOVENOX [Suspect]
     Active Substance: ENOXAPARIN SODIUM
     Indication: INTRACRANIAL VENOUS SINUS THROMBOSIS
     Route: 058
     Dates: start: 20160226

REACTIONS (2)
  - Drug administered to patient of inappropriate age [Unknown]
  - Drug ineffective [Unknown]
